FAERS Safety Report 23126631 (Version 2)
Quarter: 2023Q4

REPORT INFORMATION
  Report Type: Spontaneous
  Country: US (occurrence: US)
  Receive Date: 20231030
  Receipt Date: 20231113
  Transmission Date: 20240110
  Serious: Yes (Hospitalization, Other)
  Sender: FDA-Public Use
  Company Number: US-ZENPEP LLC-2023AIMT01141

PATIENT

DRUGS (2)
  1. ZENPEP [Suspect]
     Active Substance: PANCRELIPASE AMYLASE\PANCRELIPASE LIPASE\PANCRELIPASE PROTEASE
     Indication: Pancreatic failure
     Dosage: 40 000 USP UNITS
     Route: 048
     Dates: start: 20210920
  2. ZENPEP [Suspect]
     Active Substance: PANCRELIPASE AMYLASE\PANCRELIPASE LIPASE\PANCRELIPASE PROTEASE
     Dosage: 40 000 USP UNITS, ONCE, LAST DOSE PRIOR TO EVENTS
     Route: 048

REACTIONS (3)
  - Vascular device infection [Recovered/Resolved]
  - Klebsiella bacteraemia [Recovered/Resolved]
  - Pyrexia [Recovered/Resolved]

NARRATIVE: CASE EVENT DATE: 20230912
